FAERS Safety Report 7225672-8 (Version None)
Quarter: 2011Q1

REPORT INFORMATION
  Report Type: 
  Country: None (occurrence: None)
  Receive Date: 20110110
  Receipt Date: 20110110
  Transmission Date: 20110831
  Serious: No
  Sender: FDA-Public Use
  Company Number: None

PATIENT
  Age: 61 Year
  Sex: Male
  Weight: 120.2032 kg

DRUGS (2)
  1. PROPOXYPHENE NAPSYLATE AND ACETAMINOPHEN [Suspect]
     Indication: NECK PAIN
     Dosage: 1 TABLET 4 TO 6 HRS AS NEED
     Dates: start: 20091021, end: 20101201
  2. PROPOXYPHENE NAPSYLATE AND ACETAMINOPHEN [Suspect]
     Indication: BACK PAIN
     Dosage: 1 TABLET 4 TO 6 HRS AS NEED
     Dates: start: 20091021, end: 20101201

REACTIONS (2)
  - EXTRASYSTOLES [None]
  - HEART RATE ABNORMAL [None]
